FAERS Safety Report 8169081-6 (Version None)
Quarter: 2012Q1

REPORT INFORMATION
  Report Type: 
  Country: None (occurrence: None)
  Receive Date: 20120227
  Receipt Date: 20120222
  Transmission Date: 20120608
  Serious: Yes (Death)
  Sender: FDA-Public Use
  Company Number: CN-ASTRAZENECA-2012SE12228

PATIENT
  Age: 27 Year
  Sex: Male

DRUGS (2)
  1. VITAMIN B-12 [Suspect]
  2. BUPIVACAINE HCL [Suspect]
     Indication: ANALGESIC THERAPY
     Route: 008

REACTIONS (1)
  - COMA [None]
